FAERS Safety Report 18453424 (Version 1)
Quarter: 2020Q4

REPORT INFORMATION
  Report Type: Report from Study
  Country: US (occurrence: US)
  Receive Date: 20201102
  Receipt Date: 20201102
  Transmission Date: 20210114
  Serious: Yes (Hospitalization)
  Sender: FDA-Public Use
  Company Number: US-SHIRE-US202031308

PATIENT
  Age: 71 Year
  Sex: Male

DRUGS (9)
  1. GATTEX [Suspect]
     Active Substance: TEDUGLUTIDE\WATER
     Indication: SHORT-BOWEL SYNDROME
     Dosage: 4.15 MILLIGRAM, 1X/DAY:QD
     Route: 058
     Dates: start: 20200223
  2. GATTEX [Suspect]
     Active Substance: TEDUGLUTIDE\WATER
     Dosage: 4.15 MILLIGRAM, 1X/DAY:QD
     Route: 058
     Dates: start: 20200221
  3. GATTEX [Suspect]
     Active Substance: TEDUGLUTIDE\WATER
     Dosage: 4.15 MILLIGRAM, 1X/DAY:QD
     Route: 058
     Dates: start: 20200221
  4. GATTEX [Suspect]
     Active Substance: TEDUGLUTIDE\WATER
     Indication: SHORT-BOWEL SYNDROME
     Dosage: 4.15 MILLIGRAM, 1X/DAY:QD
     Route: 058
     Dates: start: 20200223
  5. GATTEX [Suspect]
     Active Substance: TEDUGLUTIDE\WATER
     Indication: SHORT-BOWEL SYNDROME
     Dosage: 4.15 MILLIGRAM, 1X/DAY:QD
     Route: 058
     Dates: start: 20200223
  6. GATTEX [Suspect]
     Active Substance: TEDUGLUTIDE\WATER
     Dosage: 4.15 MILLIGRAM, 1X/DAY:QD
     Route: 058
     Dates: start: 20200221
  7. GATTEX [Suspect]
     Active Substance: TEDUGLUTIDE\WATER
     Dosage: 4.15 MILLIGRAM, 1X/DAY:QD
     Route: 058
     Dates: start: 20200221
  8. GATTEX [Suspect]
     Active Substance: TEDUGLUTIDE\WATER
     Indication: SHORT-BOWEL SYNDROME
     Dosage: 4.15 MILLIGRAM, 1X/DAY:QD
     Route: 058
     Dates: start: 20200223
  9. LASIX [Concomitant]
     Active Substance: FUROSEMIDE
     Indication: PRODUCT USED FOR UNKNOWN INDICATION

REACTIONS (6)
  - Leukocytosis [Unknown]
  - Nausea [Unknown]
  - Colitis [Unknown]
  - Increased appetite [Unknown]
  - Vomiting [Recovered/Resolved]
  - Weight increased [Unknown]

NARRATIVE: CASE EVENT DATE: 20200923
